FAERS Safety Report 6968704-4 (Version None)
Quarter: 2010Q3

REPORT INFORMATION
  Report Type: 
  Country: None (occurrence: None)
  Receive Date: 20100907
  Receipt Date: 20100827
  Transmission Date: 20110219
  Serious: Yes (Hospitalization)
  Sender: FDA-Public Use
  Company Number: DE-JNJFOC-20100809006

PATIENT
  Sex: Female
  Weight: 95 kg

DRUGS (4)
  1. STELARA [Suspect]
     Indication: PSORIASIS
     Route: 058
  2. TORASEMID [Concomitant]
  3. GLYCEROLTRINITRAT [Concomitant]
  4. INSULIN [Concomitant]
     Indication: DIABETES MELLITUS

REACTIONS (3)
  - CHILLS [None]
  - MALAISE [None]
  - PYREXIA [None]
